FAERS Safety Report 9849288 (Version 1)
Quarter: 2014Q1

REPORT INFORMATION
  Report Type: Spontaneous
  Country: TR (occurrence: None)
  Receive Date: 20140124
  Receipt Date: 20140124
  Transmission Date: 20141002
  Serious: Yes (Other)
  Sender: FDA-Public Use
  Company Number: 2130440

PATIENT
  Age: 33 Year
  Sex: Female
  Weight: 55 kg

DRUGS (1)
  1. METHOTREXATE [Suspect]
     Indication: ECTOPIC PREGNANCY
     Route: 030

REACTIONS (14)
  - Febrile neutropenia [None]
  - Dermatitis [None]
  - Thrombocytopenia [None]
  - Stomatitis [None]
  - Alopecia [None]
  - Diarrhoea [None]
  - Maternal exposure during pregnancy [None]
  - Mouth ulceration [None]
  - Haematocrit decreased [None]
  - White blood cell count decreased [None]
  - Platelet count decreased [None]
  - Agranulocytosis [None]
  - Bone marrow failure [None]
  - Folate deficiency [None]
